FAERS Safety Report 5658282-4 (Version None)
Quarter: 2008Q1

REPORT INFORMATION
  Report Type: 
  Country: None (occurrence: None)
  Receive Date: 20080310
  Receipt Date: 20070124
  Transmission Date: 20080703
  Serious: No
  Sender: FDA-Public Use
  Company Number: US-BAYER-200710276BCC

PATIENT
  Age: 81 Year
  Sex: Female
  Weight: 64 kg

DRUGS (4)
  1. ALEVE (CAPLET) [Suspect]
     Indication: MUSCULOSKELETAL PAIN
     Dosage: TOTAL DAILY DOSE: 220 MG  UNIT DOSE: 220 MG
     Route: 048
     Dates: start: 20070120
  2. ALEVE (CAPLET) [Suspect]
     Dosage: TOTAL DAILY DOSE: 660 MG  UNIT DOSE: 220 MG
     Route: 048
     Dates: start: 20070121
  3. ACIPHEX [Concomitant]
  4. WELCHOL [Concomitant]

REACTIONS (3)
  - BLISTER [None]
  - HYPERSENSITIVITY [None]
  - PRURITUS [None]
